FAERS Safety Report 6148601-7 (Version None)
Quarter: 2009Q2

REPORT INFORMATION
  Report Type: 
  Country: None (occurrence: None)
  Receive Date: 20090408
  Receipt Date: 20090401
  Transmission Date: 20091009
  Serious: Yes (Other)
  Sender: FDA-Public Use
  Company Number: JP-BAXTER-2009BH005202

PATIENT
  Age: 37 Year
  Sex: Female

DRUGS (3)
  1. ENDOXAN BAXTER [Suspect]
     Indication: BREAST CANCER STAGE II
     Route: 065
     Dates: start: 20070601, end: 20070801
  2. FARMORUBICIN [Suspect]
     Indication: BREAST CANCER STAGE II
     Route: 065
     Dates: start: 20070601, end: 20070801
  3. FLUOROURACIL CAP [Suspect]
     Indication: BREAST CANCER STAGE II
     Route: 065
     Dates: start: 20070601, end: 20070801

REACTIONS (1)
  - HEPATITIS B [None]
